FAERS Safety Report 5406728-9 (Version None)
Quarter: 2007Q3

REPORT INFORMATION
  Report Type: 
  Country: None (occurrence: None)
  Receive Date: 20070802
  Receipt Date: 20070723
  Transmission Date: 20080115
  Serious: Yes (Life-Threatening, Hospitalization, Other)
  Sender: FDA-Public Use
  Company Number: US020738

PATIENT
  Age: 41 Year
  Sex: Female

DRUGS (6)
  1. FENTANYL [Suspect]
     Dosage: 100 UG BUCCAL
     Route: 002
  2. DEXAMETHASONE 0.5MG TAB [Suspect]
     Dosage: 4 MG
  3. MIDAZOLAM [Suspect]
     Dosage: 2 MG
  4. PROPOFOL [Suspect]
     Dosage: 200 MG
  5. SUCCINYLCHOLINE CHLORIDE [Suspect]
     Dosage: 100 MG INTRAVENOUS
     Route: 042
  6. DESFLURANE [Concomitant]

REACTIONS (4)
  - ANAPHYLACTIC REACTION [None]
  - CIRCULATORY COLLAPSE [None]
  - ERYTHEMA [None]
  - LARYNGOSPASM [None]
